FAERS Safety Report 16336377 (Version 3)
Quarter: 2019Q2

REPORT INFORMATION
  Report Type: Spontaneous
  Country: FR (occurrence: FR)
  Receive Date: 20190521
  Receipt Date: 20190627
  Transmission Date: 20190711
  Serious: Yes (Hospitalization, Other)
  Sender: FDA-Public Use
  Company Number: FR-AUROBINDO-AUR-APL-2019-028900

PATIENT

DRUGS (2)
  1. ZOLEDRONIC ACID SOLUTION FOR INFUSION [Suspect]
     Active Substance: ZOLEDRONIC ACID
     Indication: PLASMA CELL MYELOMA
     Dosage: UNK, MONTHLY
     Route: 042
  2. LENALIDOMIDE [Suspect]
     Active Substance: LENALIDOMIDE
     Indication: PLASMA CELL MYELOMA
     Dosage: UNK
     Route: 048

REACTIONS (14)
  - Glycosuria [Recovered/Resolved]
  - Acute kidney injury [Recovering/Resolving]
  - Fanconi syndrome [Recovered/Resolved]
  - Fibrosis [Recovered/Resolved]
  - Asthenia [Recovering/Resolving]
  - Renal tubular necrosis [Recovered/Resolved]
  - Aminoaciduria [Recovered/Resolved]
  - Proteinuria [Recovered/Resolved]
  - Weight decreased [Recovering/Resolving]
  - Metabolic acidosis [Recovered/Resolved]
  - Hypokalaemia [Recovered/Resolved]
  - Renal tubular dysfunction [Recovered/Resolved]
  - Renal tubular atrophy [Recovered/Resolved]
  - Product use in unapproved indication [Unknown]
